FAERS Safety Report 7784632-9 (Version None)
Quarter: 2011Q3

REPORT INFORMATION
  Report Type: 
  Country: None (occurrence: None)
  Receive Date: 20110928
  Receipt Date: 20110926
  Transmission Date: 20111222
  Serious: Yes (Death, Hospitalization)
  Sender: FDA-Public Use
  Company Number: US-BRISTOL-MYERS SQUIBB COMPANY-15718224

PATIENT
  Age: 59 Year
  Sex: Female

DRUGS (4)
  1. SYNTHROID [Concomitant]
     Dates: start: 20110505
  2. REMERON [Concomitant]
     Dates: start: 20110505
  3. FLOMAX [Concomitant]
     Dates: start: 20110505
  4. IPILIMUMAB [Suspect]
     Indication: MALIGNANT MELANOMA
     Dosage: RECEIVED 415MG
     Route: 042
     Dates: start: 20110405, end: 20110609

REACTIONS (8)
  - SPINAL CORD COMPRESSION [None]
  - PAIN [None]
  - DEHYDRATION [None]
  - PYREXIA [None]
  - NEOPLASM MALIGNANT [None]
  - NAUSEA [None]
  - VOMITING [None]
  - DIARRHOEA [None]
